FAERS Safety Report 6206551-1 (Version None)
Quarter: 2009Q2

REPORT INFORMATION
  Report Type: 
  Country: None (occurrence: None)
  Receive Date: 20090528
  Receipt Date: 20090519
  Transmission Date: 20091009
  Serious: No
  Sender: FDA-Public Use
  Company Number: US-ELI_LILLY_AND_COMPANY-US200903006320

PATIENT
  Age: 73 Year
  Sex: Female

DRUGS (8)
  1. FORTEO [Suspect]
     Indication: OSTEOPOROSIS
     Dates: start: 20080501
  2. AMLODIPINE [Concomitant]
     Dosage: 15 MG, DAILY (1/D)
  3. CLONAZEPAM [Concomitant]
     Dosage: 0.5 MG, EACH EVENING
  4. COZAAR [Concomitant]
     Dosage: 25 MG, DAILY (1/D)
  5. FUROSEMIDE [Concomitant]
     Dosage: 40 MG, DAILY (1/D)
  6. MIRTAZAPINE [Concomitant]
     Dosage: 45 MG, EACH EVENING
  7. SERTRALINE /01011402/ [Concomitant]
     Dosage: 200 MG, DAILY (1/D)
  8. TRAMADOL /00599202/ [Concomitant]

REACTIONS (1)
  - FALL [None]
